FAERS Safety Report 9393451 (Version 1)
Quarter: 2013Q3

REPORT INFORMATION
  Report Type: Spontaneous
  Country: GB (occurrence: None)
  Receive Date: 20130705
  Receipt Date: 20130705
  Transmission Date: 20140515
  Serious: Yes (Disabling, Other)
  Sender: FDA-Public Use
  Company Number: GB-021176

PATIENT
  Age: 72 Year
  Sex: Male
  Weight: 78.6 kg

DRUGS (2)
  1. CHLORAMBUCIL (CHLORAMBUCIL) (UNKNOWN) [Suspect]
     Indication: CHRONIC LYMPHOCYTIC LEUKAEMIA
     Dosage: UNK (10 MG/M2, DAYS 1-7), PO
     Route: 048
     Dates: start: 20100527
  2. OFATUMUMAB [Concomitant]

REACTIONS (6)
  - Myoclonus [None]
  - Dyskinesia [None]
  - Malaise [None]
  - Tremor [None]
  - Bundle branch block right [None]
  - Extrasystoles [None]
